FAERS Safety Report 16845429 (Version 1)
Quarter: 2019Q3

REPORT INFORMATION
  Report Type: Spontaneous
  Country: US (occurrence: US)
  Receive Date: 20190924
  Receipt Date: 20190924
  Transmission Date: 20191005
  Serious: No
  Sender: FDA-Public Use
  Company Number: US-BRACCO-2019US03127

PATIENT
  Age: 36 Year
  Sex: Male

DRUGS (1)
  1. CYSTOGRAFIN [Suspect]
     Active Substance: DIATRIZOATE MEGLUMINE
     Indication: UROGRAM
     Dosage: 100 ML, SINGLE
     Route: 042
     Dates: start: 20190621, end: 20190621

REACTIONS (3)
  - Wrong product administered [Unknown]
  - No adverse event [Unknown]
  - Incorrect route of product administration [Unknown]

NARRATIVE: CASE EVENT DATE: 20190621
